FAERS Safety Report 8806292 (Version 1)
Quarter: 2012Q4

REPORT INFORMATION
  Report Type: Spontaneous
  Country: US (occurrence: None)
  Receive Date: 20120919
  Receipt Date: 20120919
  Transmission Date: 20130627
  Serious: No
  Sender: FDA-Public Use
  Company Number: None

PATIENT

DRUGS (2)
  1. ROCEPHIN [Suspect]
     Route: 030
  2. KEFLEX [Suspect]

REACTIONS (1)
  - Documented hypersensitivity to administered drug [None]
